FAERS Safety Report 17238722 (Version 2)
Quarter: 2020Q1

REPORT INFORMATION
  Report Type: Spontaneous
  Country: SI (occurrence: SI)
  Receive Date: 20200106
  Receipt Date: 20200106
  Transmission Date: 20200409
  Serious: Yes (Other)
  Sender: FDA-Public Use
  Company Number: SI-JNJFOC-20200104246

PATIENT
  Age: 72 Year
  Sex: Female

DRUGS (9)
  1. RIVAROXABAN [Suspect]
     Active Substance: RIVAROXABAN
     Indication: HIP ARTHROPLASTY
     Dosage: 1 DF
     Route: 048
     Dates: start: 20191201
  2. LACIPIL [Concomitant]
     Active Substance: LACIDIPINE
  3. ENALAPRIL [Concomitant]
     Active Substance: ENALAPRIL
  4. ENAP HL [Concomitant]
  5. ANALGIN [ACETYLSALICYLIC ACID;CAFFEINE;PARACETAMOL] [Concomitant]
  6. TRAMAL [Concomitant]
     Active Substance: TRAMADOL
  7. LEKADOL [Concomitant]
     Active Substance: ACETAMINOPHEN
  8. CONCOR [Concomitant]
     Active Substance: BISOPROLOL FUMARATE
  9. METFORMIN HYDROCHLORIDE. [Concomitant]
     Active Substance: METFORMIN HYDROCHLORIDE

REACTIONS (4)
  - Diarrhoea haemorrhagic [Recovered/Resolved]
  - Oedema peripheral [Recovering/Resolving]
  - Muscle spasms [Recovering/Resolving]
  - Muscular weakness [Recovering/Resolving]

NARRATIVE: CASE EVENT DATE: 20191202
